FAERS Safety Report 9772827 (Version 1)
Quarter: 2013Q4

REPORT INFORMATION
  Report Type: Spontaneous
  Country: DK (occurrence: DK)
  Receive Date: 20131219
  Receipt Date: 20131219
  Transmission Date: 20140711
  Serious: Yes (Other)
  Sender: FDA-Public Use
  Company Number: PHHY2013DK145438

PATIENT
  Age: 74 Year
  Sex: Female

DRUGS (2)
  1. ALENDRONATE SANDOZ [Suspect]
     Indication: OSTEOPOROSIS
     Dosage: 70 MG, QW
     Route: 048
     Dates: start: 20121123, end: 201301
  2. ALENDRONATE (ALENDRONATE SODIUM) [Suspect]
     Indication: OSTEOPOROSIS
     Dosage: 70 MG, QW
     Route: 048
     Dates: start: 20120921, end: 20121122

REACTIONS (4)
  - Tooth loss [Unknown]
  - Osteonecrosis of jaw [Unknown]
  - Rash [Unknown]
  - Arthralgia [Unknown]
